FAERS Safety Report 21750692 (Version 1)
Quarter: 2022Q4

REPORT INFORMATION
  Report Type: Spontaneous
  Country: None (occurrence: FR)
  Receive Date: 20221219
  Receipt Date: 20221219
  Transmission Date: 20230113
  Serious: Yes (Other)
  Sender: FDA-Public Use
  Company Number: FR-B.Braun Medical Inc.-2135978

PATIENT
  Age: 18 Year
  Sex: Male

DRUGS (5)
  1. ACETAMINOPHEN [Suspect]
     Active Substance: ACETAMINOPHEN
  2. ALCOHOL [Suspect]
     Active Substance: ALCOHOL
  3. CAFFEINE [Suspect]
     Active Substance: CAFFEINE
  4. HEROIN [Suspect]
     Active Substance: DIAMORPHINE
  5. NOSCAPINE [Suspect]
     Active Substance: NOSCAPINE

REACTIONS (3)
  - Drug abuse [Not Recovered/Not Resolved]
  - Somnolence [Not Recovered/Not Resolved]
  - Nausea [Not Recovered/Not Resolved]
